FAERS Safety Report 24948586 (Version 1)
Quarter: 2025Q1

REPORT INFORMATION
  Report Type: Spontaneous
  Country: US (occurrence: US)
  Receive Date: 20250210
  Receipt Date: 20250210
  Transmission Date: 20250408
  Serious: No
  Sender: TAKEDA
  Company Number: US-TAKEDA-2025TUS012208

PATIENT
  Sex: Female
  Weight: 61 kg

DRUGS (2)
  1. TRINTELLIX [Suspect]
     Active Substance: VORTIOXETINE HYDROBROMIDE
     Indication: Depression
  2. HYDROXYZINE [Concomitant]
     Active Substance: HYDROXYZINE HYDROCHLORIDE

REACTIONS (6)
  - Depressed mood [Unknown]
  - Asthenia [Unknown]
  - Memory impairment [Unknown]
  - Crying [Unknown]
  - Menstrual disorder [Unknown]
  - Headache [Unknown]
